FAERS Safety Report 11688124 (Version 1)
Quarter: 2015Q4

REPORT INFORMATION
  Report Type: Spontaneous
  Country: US (occurrence: US)
  Receive Date: 20151030
  Receipt Date: 20151030
  Transmission Date: 20160304
  Serious: No
  Sender: FDA-Public Use
  Company Number: US-ASTRAZENECA-2015SF02181

PATIENT
  Age: 656 Month
  Sex: Male
  Weight: 90.7 kg

DRUGS (4)
  1. PERCOCET [Concomitant]
     Active Substance: ACETAMINOPHEN\OXYCODONE HYDROCHLORIDE
     Indication: BACK DISORDER
     Route: 048
  2. PERCOCET [Concomitant]
     Active Substance: ACETAMINOPHEN\OXYCODONE HYDROCHLORIDE
     Indication: NEUROPATHY PERIPHERAL
     Route: 048
  3. FENTANYL. [Concomitant]
     Active Substance: FENTANYL
     Dates: start: 2009
  4. MOVANTIK [Suspect]
     Active Substance: NALOXEGOL OXALATE
     Indication: CONSTIPATION
     Route: 048
     Dates: start: 20151017

REACTIONS (2)
  - Diarrhoea [Unknown]
  - Drug effect delayed [Unknown]

NARRATIVE: CASE EVENT DATE: 201510
